FAERS Safety Report 9608391 (Version 2)
Quarter: 2013Q4

REPORT INFORMATION
  Report Type: Spontaneous
  Country: US (occurrence: US)
  Receive Date: 20131009
  Receipt Date: 20131101
  Transmission Date: 20140711
  Serious: Yes (Other)
  Sender: FDA-Public Use
  Company Number: US-RANBAXY-2013US-73709

PATIENT
  Sex: Female

DRUGS (3)
  1. LORAZEPAM [Suspect]
     Indication: INSOMNIA
     Dosage: UNK
     Route: 065
  2. LORAZEPAM [Suspect]
     Indication: ANXIETY
  3. LORAZEPAM [Suspect]
     Indication: CONVULSION

REACTIONS (8)
  - Glaucoma [Unknown]
  - Fluid retention [Unknown]
  - Dyspepsia [Unknown]
  - Drug ineffective [Unknown]
  - Off label use [Unknown]
  - Constipation [Unknown]
  - Dry mouth [Unknown]
  - Dysgeusia [Unknown]
